FAERS Safety Report 9960037 (Version 2)
Quarter: 2014Q2

REPORT INFORMATION
  Report Type: Spontaneous
  Country: FR (occurrence: None)
  Receive Date: 20140227
  Receipt Date: 20140430
  Transmission Date: 20141212
  Serious: Yes (Hospitalization)
  Sender: FDA-Public Use
  Company Number: B0955734A

PATIENT
  Age: 78 Year
  Sex: Female

DRUGS (9)
  1. PAROXETINE HYDROCHLORIDE [Suspect]
     Indication: PRODUCT USED FOR UNKNOWN INDICATION
     Route: 048
     Dates: start: 201004, end: 20131201
  2. COAPROVEL [Suspect]
     Indication: PRODUCT USED FOR UNKNOWN INDICATION
     Route: 048
     Dates: end: 20131201
  3. ETIFOXIN HYDROCHLORIDE [Suspect]
     Indication: PRODUCT USED FOR UNKNOWN INDICATION
     Route: 048
     Dates: start: 201104, end: 20131201
  4. CARDIOCALM [Suspect]
     Indication: PRODUCT USED FOR UNKNOWN INDICATION
     Route: 048
     Dates: end: 20131201
  5. SODIUM CHONDROITIN SULFATE [Suspect]
     Indication: PRODUCT USED FOR UNKNOWN INDICATION
     Route: 048
     Dates: start: 201004, end: 20131201
  6. MESALAZINE [Concomitant]
  7. ATORVASTATIN CALCIUM [Concomitant]
  8. TARDYFERON [Concomitant]
  9. FOLIC ACID [Concomitant]

REACTIONS (13)
  - Colitis microscopic [None]
  - Osteoarthritis [None]
  - Multiple injuries [None]
  - Road traffic accident [None]
  - Coma [None]
  - Traumatic lung injury [None]
  - Peripheral nerve lesion [None]
  - Arterial rupture [None]
  - Phlebitis [None]
  - Clostridium test positive [None]
  - Hypokalaemia [None]
  - Tibia fracture [None]
  - Pubis fracture [None]
